FAERS Safety Report 16863257 (Version 1)
Quarter: 2019Q3

REPORT INFORMATION
  Report Type: Spontaneous
  Country: DE (occurrence: DE)
  Receive Date: 20190927
  Receipt Date: 20190927
  Transmission Date: 20191005
  Serious: Yes (Other)
  Sender: FDA-Public Use
  Company Number: DE-PFIZER INC-2019413930

PATIENT
  Age: 54 Year
  Sex: Female
  Weight: 65 kg

DRUGS (10)
  1. NOVAMINSULFON LICHTENSTEIN [Concomitant]
     Active Substance: METAMIZOLE SODIUM
     Indication: INTERVERTEBRAL DISC PROTRUSION
  2. ORTOTON [METHOCARBAMOL] [Concomitant]
     Indication: INTERVERTEBRAL DISC PROTRUSION
     Dosage: UNK UNK, SINGLE (PZN13868898 ORTOTON FORTE)
     Route: 048
     Dates: start: 20190216
  3. PANTOPRAZOLE [Concomitant]
     Active Substance: PANTOPRAZOLE
     Indication: SUPPORTIVE CARE
     Dosage: 40 MG, 1X/DAY (PANTOPRAZOL BASICS PZN 03275884)
     Route: 048
     Dates: start: 20190506
  4. LATANOPROST PFIZER [Suspect]
     Active Substance: LATANOPROST
     Indication: GLAUCOMA
     Dosage: UNK UNK, 1X/DAY SINCE 4 YEARS (PZN09097260)
     Route: 047
     Dates: end: 201907
  5. IBUPROFEN. [Concomitant]
     Active Substance: IBUPROFEN
     Indication: INTERVERTEBRAL DISC PROTRUSION
     Dosage: MANUFACTURER ABZ (PZN 01016090)
     Route: 048
     Dates: start: 20190506
  6. IBUPROFEN. [Concomitant]
     Active Substance: IBUPROFEN
     Indication: SACROILIITIS
  7. PREDNISOLON AL [Concomitant]
     Active Substance: PREDNISOLONE
     Indication: INTERVERTEBRAL DISC PROTRUSION
     Dosage: (PZN04208335)
     Route: 048
     Dates: start: 20190114
  8. NOVAMINSULFON LICHTENSTEIN [Concomitant]
     Active Substance: METAMIZOLE SODIUM
     Indication: SACROILIITIS
     Dosage: SHORT TERM INTAKE (PZN 03507946)
     Route: 048
     Dates: start: 20190116
  9. ORTOTON [METHOCARBAMOL] [Concomitant]
     Indication: SACROILIITIS
  10. LATANOPROST PFIZER [Suspect]
     Active Substance: LATANOPROST
     Dosage: RE-EXPOSITION IN LOWER DOSE
     Route: 047
     Dates: start: 20190812

REACTIONS (5)
  - Muscle spasms [Unknown]
  - Myalgia [Unknown]
  - Myosclerosis [Unknown]
  - Paralysis [Unknown]
  - Pain [Unknown]

NARRATIVE: CASE EVENT DATE: 2019
